FAERS Safety Report 6070687-9 (Version None)
Quarter: 2009Q1

REPORT INFORMATION
  Report Type: 
  Country: None (occurrence: None)
  Receive Date: 20090209
  Receipt Date: 20090128
  Transmission Date: 20090719
  Serious: Yes (Other)
  Sender: FDA-Public Use
  Company Number: BR-PFIZER INC-2008157858

PATIENT

DRUGS (11)
  1. NEURONTIN [Suspect]
     Indication: NERVOUS SYSTEM DISORDER
     Dosage: UNK
     Route: 048
     Dates: start: 20020101
  2. RAVOTRIL [Concomitant]
  3. SIMVASTATIN [Concomitant]
     Dosage: 40 MG, UNK
  4. ENALAPRIL MALEATE [Concomitant]
     Dosage: 10 MG, 2X/DAY
  5. HYDROCHLOROTHIAZIDE [Concomitant]
  6. GLIBENCLAMIDE [Concomitant]
  7. METHADONE [Concomitant]
     Dosage: 10 MG, UNK
  8. BACLOFEN [Concomitant]
  9. FLUOXETINE [Concomitant]
     Dosage: UNK
  10. AMITRIPTYLINE [Concomitant]
     Indication: PAIN
     Dosage: UNK
  11. IMMUNOGLOBULINS [Suspect]

REACTIONS (17)
  - ARTERIAL DISORDER [None]
  - AUTONOMIC NERVOUS SYSTEM IMBALANCE [None]
  - BLOOD GLUCOSE FLUCTUATION [None]
  - BLOOD PRESSURE FLUCTUATION [None]
  - BODY TEMPERATURE DECREASED [None]
  - BODY TEMPERATURE INCREASED [None]
  - DEMYELINATION [None]
  - FEELING COLD [None]
  - FEELING HOT [None]
  - HYPERHIDROSIS [None]
  - MALAISE [None]
  - MOBILITY DECREASED [None]
  - MOTOR NEURONE DISEASE [None]
  - MUSCLE DISORDER [None]
  - NERVOUS SYSTEM DISORDER [None]
  - PAIN [None]
  - URINARY TRACT INFECTION [None]
